FAERS Safety Report 9556772 (Version 1)
Quarter: 2013Q3

REPORT INFORMATION
  Report Type: Spontaneous
  Country: US (occurrence: US)
  Receive Date: 20130926
  Receipt Date: 20130926
  Transmission Date: 20140515
  Serious: No
  Sender: FDA-Public Use
  Company Number: US-PFIZER INC-2013274838

PATIENT
  Age: 35 Year
  Sex: Female
  Weight: 95.24 kg

DRUGS (2)
  1. LYRICA [Suspect]
     Indication: FIBROMYALGIA
     Dosage: 300 MG, 3X/DAY
     Dates: end: 2013
  2. LYRICA [Suspect]
     Indication: SPINAL OSTEOARTHRITIS

REACTIONS (2)
  - Off label use [Unknown]
  - Pain [Not Recovered/Not Resolved]
